APPROVED DRUG PRODUCT: GABAPENTIN
Active Ingredient: GABAPENTIN
Strength: 250MG/5ML
Dosage Form/Route: SOLUTION;ORAL
Application: A211330 | Product #001 | TE Code: AA
Applicant: PAI HOLDINGS LLC DBA PHARMACEUTICAL ASSOCIATES INC
Approved: Dec 3, 2019 | RLD: No | RS: No | Type: RX